FAERS Safety Report 7735906-9 (Version None)
Quarter: 2011Q3

REPORT INFORMATION
  Report Type: 
  Country: None (occurrence: None)
  Receive Date: 20110908
  Receipt Date: 20110829
  Transmission Date: 20111222
  Serious: No
  Sender: FDA-Public Use
  Company Number: US-BIOGENIDEC-2011BI032996

PATIENT
  Sex: Female

DRUGS (2)
  1. REBIF [Concomitant]
     Dates: end: 20110101
  2. AVONEX [Suspect]
     Indication: MULTIPLE SCLEROSIS
     Route: 030
     Dates: start: 20080326, end: 20110406

REACTIONS (2)
  - TREMOR [None]
  - HEARING IMPAIRED [None]
